FAERS Safety Report 8907167 (Version 1)
Quarter: 2012Q4

REPORT INFORMATION
  Report Type: 
  Country: AT (occurrence: AT)
  Receive Date: 20121114
  Receipt Date: 20121114
  Transmission Date: 20130627
  Serious: Yes (Life-Threatening, Other)
  Sender: FDA-Public Use
  Company Number: AT-ASTRAZENECA-2012SE85482

PATIENT
  Age: 30139 Day
  Sex: Male

DRUGS (7)
  1. BRILIQUE [Suspect]
     Indication: ACUTE MYOCARDIAL INFARCTION
     Route: 048
     Dates: start: 20121024
  2. ASS [Concomitant]
  3. PANTOLOC [Concomitant]
  4. SORTIS [Concomitant]
  5. DANCOR [Concomitant]
  6. CONCOR [Concomitant]
  7. LOVENOX [Concomitant]

REACTIONS (1)
  - Thrombosis in device [Recovered/Resolved with Sequelae]
